FAERS Safety Report 22121050 (Version 1)
Quarter: 2023Q1

REPORT INFORMATION
  Report Type: Spontaneous
  Country: CA (occurrence: CA)
  Receive Date: 20230321
  Receipt Date: 20230321
  Transmission Date: 20230418
  Serious: Yes (Other)
  Sender: FDA-Public Use
  Company Number: CA-PFIZER INC-202300116858

PATIENT
  Age: 44 Year
  Sex: Female

DRUGS (3)
  1. METHOTREXATE SODIUM [Suspect]
     Active Substance: METHOTREXATE SODIUM
     Dosage: 1 DF
     Dates: start: 202007, end: 202107
  2. HYDROXYCHLOROQUINE SULFATE [Concomitant]
     Active Substance: HYDROXYCHLOROQUINE SULFATE
     Dosage: UNK
     Dates: start: 2019, end: 2021
  3. ARAVA [Concomitant]
     Active Substance: LEFLUNOMIDE
     Dosage: UNK
     Dates: end: 2021

REACTIONS (2)
  - Uterine haemorrhage [Not Recovered/Not Resolved]
  - Drug intolerance [Not Recovered/Not Resolved]
